FAERS Safety Report 4966889-2 (Version None)
Quarter: 2006Q2

REPORT INFORMATION
  Report Type: 
  Country: None (occurrence: None)
  Receive Date: 20060407
  Receipt Date: 20060328
  Transmission Date: 20061013
  Serious: Yes (Hospitalization, Other)
  Sender: FDA-Public Use
  Company Number: US-MERCK-0603USA04374

PATIENT
  Age: 56 Year
  Sex: Female
  Weight: 86 kg

DRUGS (11)
  1. VIOXX [Suspect]
     Indication: BACK PAIN
     Route: 048
     Dates: start: 19990601, end: 20011201
  2. NEURONTIN [Concomitant]
     Indication: PAIN
     Route: 065
     Dates: start: 19990601
  3. ULTRAM [Concomitant]
     Indication: PAIN
     Route: 065
     Dates: start: 20000204, end: 20010501
  4. HYDROCODONE BITARTRATE [Concomitant]
     Indication: PAIN
     Route: 065
     Dates: start: 20000601
  5. TYLENOL (CAPLET) [Concomitant]
     Indication: PAIN
     Route: 065
     Dates: start: 20000601
  6. MAG-OX 400 TABLETS [Concomitant]
     Indication: GASTRIC DISORDER
     Route: 065
  7. PROMETHAZINE [Concomitant]
     Indication: NAUSEA
     Route: 065
  8. BENZONATATE [Concomitant]
     Indication: COUGH
     Route: 065
  9. TEQUIN [Concomitant]
     Route: 065
  10. GUAIFENESIN [Concomitant]
     Indication: COUGH
     Route: 065
  11. GUAIFENESIN [Concomitant]
     Indication: BRONCHITIS
     Route: 065

REACTIONS (15)
  - ARTHRITIS [None]
  - BLOOD CHOLESTEROL INCREASED [None]
  - CARDIAC DISORDER [None]
  - CHEST PAIN [None]
  - CHRONIC OBSTRUCTIVE PULMONARY DISEASE [None]
  - DEEP VEIN THROMBOSIS [None]
  - DYSPNOEA [None]
  - HEART RATE IRREGULAR [None]
  - HYPERTENSION [None]
  - HYPOKALAEMIA [None]
  - MIGRAINE [None]
  - OBESITY [None]
  - OEDEMA [None]
  - PULMONARY EMBOLISM [None]
  - THROMBOSIS [None]
